FAERS Safety Report 6842983-6 (Version None)
Quarter: 2010Q3

REPORT INFORMATION
  Report Type: 
  Country: None (occurrence: None)
  Receive Date: 20100714
  Receipt Date: 20071008
  Transmission Date: 20110219
  Serious: No
  Sender: FDA-Public Use
  Company Number: US-PFIZER INC-2007066194

PATIENT
  Sex: Female
  Weight: 61.4 kg

DRUGS (6)
  1. CHANTIX [Suspect]
     Indication: SMOKING CESSATION THERAPY
     Dates: start: 20070721
  2. LIPITOR [Concomitant]
  3. VITAMINS [Concomitant]
  4. AZMACORT [Concomitant]
  5. FORADIL [Concomitant]
  6. ALBUTEROL [Concomitant]

REACTIONS (4)
  - CONSTIPATION [None]
  - FLATULENCE [None]
  - INFECTION [None]
  - NAUSEA [None]
